FAERS Safety Report 9516419 (Version 1)
Quarter: 2013Q3

REPORT INFORMATION
  Report Type: Spontaneous
  Country: PL (occurrence: PL)
  Receive Date: 20130911
  Receipt Date: 20130911
  Transmission Date: 20140515
  Serious: Yes (Other)
  Sender: FDA-Public Use
  Company Number: PHHY2013PL098007

PATIENT
  Age: 59 Year
  Sex: Male
  Weight: 80 kg

DRUGS (4)
  1. DICLAC [Suspect]
     Indication: ARTHRITIS
     Dosage: 75 MG, UNK
     Route: 048
     Dates: end: 20120315
  2. SPIRONOL [Concomitant]
     Indication: HYPERTENSION
     Dosage: 25 MG, UNK
     Route: 048
  3. SULPIRYD [Concomitant]
     Route: 048
  4. CHLORPROTHIXENE [Concomitant]
     Route: 048

REACTIONS (2)
  - Oedema [Unknown]
  - Generalised erythema [Unknown]
